FAERS Safety Report 22604940 (Version 1)
Quarter: 2023Q2

REPORT INFORMATION
  Report Type: Report from Study
  Country: US (occurrence: US)
  Receive Date: 20230615
  Receipt Date: 20230615
  Transmission Date: 20230722
  Serious: Yes (Other)
  Sender: FDA-Public Use
  Company Number: US-ABBVIE-4313484

PATIENT
  Sex: Female

DRUGS (3)
  1. RINVOQ [Suspect]
     Active Substance: UPADACITINIB
     Indication: Rheumatoid arthritis
     Dosage: FORM STRENGTH: 15 MG, END DATE 2022
     Route: 048
     Dates: start: 202210
  2. RINVOQ [Suspect]
     Active Substance: UPADACITINIB
     Indication: Rheumatoid arthritis
     Route: 048
     Dates: start: 202212, end: 202302
  3. RINVOQ [Suspect]
     Active Substance: UPADACITINIB
     Indication: Rheumatoid arthritis
     Route: 048
     Dates: start: 202304

REACTIONS (10)
  - Intraductal papilloma of breast [Unknown]
  - Nasopharyngitis [Not Recovered/Not Resolved]
  - Arthralgia [Recovering/Resolving]
  - Sinusitis [Unknown]
  - Sinus congestion [Unknown]
  - Gait disturbance [Recovering/Resolving]
  - Swelling [Recovering/Resolving]
  - Influenza [Unknown]
  - Photophobia [Unknown]
  - Hyperacusis [Unknown]

NARRATIVE: CASE EVENT DATE: 20220101
